FAERS Safety Report 14482877 (Version 2)
Quarter: 2018Q1

REPORT INFORMATION
  Report Type: Spontaneous
  Country: DE (occurrence: DE)
  Receive Date: 20180203
  Receipt Date: 20180327
  Transmission Date: 20180509
  Serious: Yes (Hospitalization, Other)
  Sender: FDA-Public Use
  Company Number: DE-009507513-1802DEU000582

PATIENT
  Age: 65 Year
  Sex: Male
  Weight: 82 kg

DRUGS (5)
  1. METFORMIN [Concomitant]
     Active Substance: METFORMIN HYDROCHLORIDE
     Indication: TYPE 2 DIABETES MELLITUS
     Dosage: 850 MG, TWICE DAILY
     Dates: end: 201801
  2. ATORVASTATIN [Concomitant]
     Active Substance: ATORVASTATIN
     Dosage: 40 MG ONCE DAILY
  3. METFORMIN [Concomitant]
     Active Substance: METFORMIN HYDROCHLORIDE
     Dosage: 850 MG, THREE TIMES DAILY
     Dates: start: 201801
  4. CANDESARTAN. [Concomitant]
     Active Substance: CANDESARTAN
     Dosage: 32/25 MG, ONCE DAILY
  5. JANUVIA [Suspect]
     Active Substance: SITAGLIPTIN PHOSPHATE
     Indication: TYPE 2 DIABETES MELLITUS
     Dosage: 100 MG, UNK
     Route: 048
     Dates: start: 20160513, end: 201801

REACTIONS (6)
  - Blood cholesterol increased [Unknown]
  - Haemangioma [Unknown]
  - Diabetes mellitus inadequate control [Unknown]
  - Renal cyst [Unknown]
  - Ductal adenocarcinoma of pancreas [Unknown]
  - Hepatic artery occlusion [Unknown]

NARRATIVE: CASE EVENT DATE: 2016
